FAERS Safety Report 10028379 (Version 5)
Quarter: 2015Q2

REPORT INFORMATION
  Report Type: Spontaneous
  Country: US (occurrence: US)
  Receive Date: 20140321
  Receipt Date: 20150616
  Transmission Date: 20150821
  Serious: Yes (Hospitalization, Other)
  Sender: FDA-Public Use
  Company Number: US-SANOFI-AVENTIS-2012SA028356

PATIENT
  Age: 76 Year
  Sex: Male
  Weight: 103.42 kg

DRUGS (25)
  1. NORMAL SALINE [Concomitant]
     Active Substance: SODIUM CHLORIDE
     Route: 042
  2. ZETIA [Concomitant]
     Active Substance: EZETIMIBE
  3. ALBUTEROL SULFATE. [Concomitant]
     Active Substance: ALBUTEROL SULFATE
  4. BENICAR [Concomitant]
     Active Substance: OLMESARTAN MEDOXOMIL
  5. AMARYL [Concomitant]
     Active Substance: GLIMEPIRIDE
  6. COREG [Concomitant]
     Active Substance: CARVEDILOL
  7. PLAVIX [Suspect]
     Active Substance: CLOPIDOGREL BISULFATE
     Indication: CARDIAC OPERATION
     Route: 048
     Dates: start: 20071119, end: 20071123
  8. MEGACE [Concomitant]
     Active Substance: MEGESTROL ACETATE
  9. LASIX [Concomitant]
     Active Substance: FUROSEMIDE
  10. PROTONIX [Concomitant]
     Active Substance: PANTOPRAZOLE SODIUM
  11. ACTOS [Concomitant]
     Active Substance: PIOGLITAZONE HYDROCHLORIDE
  12. PEPCID [Concomitant]
     Active Substance: FAMOTIDINE
  13. ATENOLOL. [Concomitant]
     Active Substance: ATENOLOL
  14. CARVEDILOL. [Concomitant]
     Active Substance: CARVEDILOL
  15. CEPHALEXIN. [Concomitant]
     Active Substance: CEPHALEXIN
  16. ENABLEX [Concomitant]
     Active Substance: DARIFENACIN\DARIFENACIN HYDROBROMIDE
  17. VITAMIN K [Concomitant]
     Active Substance: PHYTONADIONE
  18. COUMADIN [Concomitant]
     Active Substance: WARFARIN SODIUM
  19. DESONIDE. [Concomitant]
     Active Substance: DESONIDE
  20. BENICAR [Concomitant]
     Active Substance: OLMESARTAN MEDOXOMIL
  21. PLATELET [Concomitant]
  22. ASPIRIN. [Concomitant]
     Active Substance: ASPIRIN
  23. GLIMEPIRIDE. [Concomitant]
     Active Substance: GLIMEPIRIDE
  24. VIGAMOX [Concomitant]
     Active Substance: MOXIFLOXACIN HYDROCHLORIDE
  25. LORTAB [Concomitant]
     Active Substance: ACETAMINOPHEN\HYDROCODONE BITARTRATE

REACTIONS (2)
  - Upper gastrointestinal haemorrhage [Unknown]
  - Multiple injuries [Unknown]

NARRATIVE: CASE EVENT DATE: 20071123
